FAERS Safety Report 4665655-5 (Version None)
Quarter: 2005Q2

REPORT INFORMATION
  Report Type: 
  Country: None (occurrence: None)
  Receive Date: 20050517
  Receipt Date: 20050503
  Transmission Date: 20051028
  Serious: No
  Sender: FDA-Public Use
  Company Number: USA050597272

PATIENT
  Age: 11 Year

DRUGS (1)
  1. STRATTERA [Suspect]
     Dosage: 80 MG DAY

REACTIONS (1)
  - HEPATIC ENZYME INCREASED [None]
